FAERS Safety Report 18136936 (Version 4)
Quarter: 2024Q4

REPORT INFORMATION
  Report Type: Spontaneous
  Country: US (occurrence: US)
  Receive Date: 20200811
  Receipt Date: 20241011
  Transmission Date: 20250115
  Serious: No
  Sender: PFIZER
  Company Number: US-PFIZER INC-2020306145

PATIENT
  Age: 70 Year
  Sex: Female

DRUGS (8)
  1. XELJANZ XR [Suspect]
     Active Substance: TOFACITINIB CITRATE
     Indication: Rheumatoid arthritis
     Dosage: 11 MG
  2. XELJANZ XR [Suspect]
     Active Substance: TOFACITINIB CITRATE
     Indication: Psoriatic arthropathy
     Dosage: 11 MG, 1X/DAY
     Route: 048
  3. POTASSIUM [Concomitant]
     Active Substance: POTASSIUM
  4. SERTRALINE [Concomitant]
     Active Substance: SERTRALINE HYDROCHLORIDE
  5. GABAPENTIN [Concomitant]
     Active Substance: GABAPENTIN
  6. LASIX [Concomitant]
     Active Substance: FUROSEMIDE
  7. ROSUVASTATIN [Concomitant]
     Active Substance: ROSUVASTATIN
  8. ENALAPRIL [Concomitant]
     Active Substance: ENALAPRIL

REACTIONS (2)
  - Therapeutic response unexpected [Unknown]
  - Fluid retention [Recovering/Resolving]
